FAERS Safety Report 24460033 (Version 1)
Quarter: 2024Q4

REPORT INFORMATION
  Report Type: Report from Study
  Country: US (occurrence: US)
  Receive Date: 20241018
  Receipt Date: 20241018
  Transmission Date: 20250115
  Serious: No
  Sender: ROCHE
  Company Number: US-ROCHE-3569279

PATIENT
  Age: 56 Year
  Sex: Female

DRUGS (2)
  1. RITUXAN [Suspect]
     Active Substance: RITUXIMAB
     Indication: Rheumatoid arthritis
     Route: 041
  2. RITUXAN [Suspect]
     Active Substance: RITUXIMAB
     Dosage: THERAPY END DATE: 08/JAN/2025, 500 MG SINGLE-USE VIAL
     Route: 041
     Dates: start: 20240108

REACTIONS (1)
  - Malaise [Unknown]
